FAERS Safety Report 6865717-8 (Version None)
Quarter: 2010Q3

REPORT INFORMATION
  Report Type: 
  Country: None (occurrence: None)
  Receive Date: 20100721
  Receipt Date: 20080429
  Transmission Date: 20110219
  Serious: No
  Sender: FDA-Public Use
  Company Number: US-PFIZER INC-2008038517

PATIENT
  Age: 46 Year
  Sex: Female
  Weight: 59.09 kg

DRUGS (2)
  1. CHANTIX [Suspect]
     Dates: start: 20080401, end: 20080401
  2. ALL OTHER THERAPEUTIC PRODUCTS [Concomitant]

REACTIONS (5)
  - ABNORMAL DREAMS [None]
  - INSOMNIA [None]
  - IRRITABILITY [None]
  - NAUSEA [None]
  - SLEEP DISORDER [None]
